FAERS Safety Report 6198031-7 (Version None)
Quarter: 2009Q2

REPORT INFORMATION
  Report Type: 
  Country: None (occurrence: None)
  Receive Date: 20090518
  Receipt Date: 20090320
  Transmission Date: 20091009
  Serious: Yes (Hospitalization)
  Sender: FDA-Public Use
  Company Number: 2009S1001102

PATIENT
  Age: 17 Year
  Sex: Male
  Weight: 98.8842 kg

DRUGS (6)
  1. AMNESTEEM [Suspect]
     Indication: ACNE
     Dosage: 20 MG; DAILY; ORAL, 20 MG; DAILY; ORAL, 20 MG; DAILY; ORAL
     Route: 048
     Dates: start: 20080501, end: 20080601
  2. AMNESTEEM [Suspect]
     Indication: ACNE
     Dosage: 20 MG; DAILY; ORAL, 20 MG; DAILY; ORAL, 20 MG; DAILY; ORAL
     Route: 048
     Dates: start: 20080731, end: 20080731
  3. AMNESTEEM [Suspect]
     Indication: ACNE
     Dosage: 20 MG; DAILY; ORAL, 20 MG; DAILY; ORAL, 20 MG; DAILY; ORAL
     Route: 048
     Dates: start: 20081101, end: 20081201
  4. AMNESTEEM [Suspect]
     Indication: ACNE
     Dosage: 40 MG; EVERY MORNING; ORAL, 40 MG; EVERY MORNING; ORAL, 40 MG; EVERY MORNING; ORAL
     Route: 048
     Dates: start: 20080501, end: 20080601
  5. AMNESTEEM [Suspect]
     Indication: ACNE
     Dosage: 40 MG; EVERY MORNING; ORAL, 40 MG; EVERY MORNING; ORAL, 40 MG; EVERY MORNING; ORAL
     Route: 048
     Dates: start: 20080731, end: 20080731
  6. AMNESTEEM [Suspect]
     Indication: ACNE
     Dosage: 40 MG; EVERY MORNING; ORAL, 40 MG; EVERY MORNING; ORAL, 40 MG; EVERY MORNING; ORAL
     Route: 048
     Dates: start: 20081101, end: 20081201

REACTIONS (4)
  - APPENDICITIS [None]
  - ASPARTATE AMINOTRANSFERASE INCREASED [None]
  - LIVER FUNCTION TEST ABNORMAL [None]
  - VIRAL INFECTION [None]
